FAERS Safety Report 16671708 (Version 2)
Quarter: 2019Q4

REPORT INFORMATION
  Report Type: Report from Study
  Country: DE (occurrence: DE)
  Receive Date: 20190806
  Receipt Date: 20191205
  Transmission Date: 20200122
  Serious: Yes (Other)
  Sender: FDA-Public Use
  Company Number: DE-ROCHE-2368339

PATIENT
  Sex: Female
  Weight: 54 kg

DRUGS (7)
  1. RANIBIZUMAB. [Suspect]
     Active Substance: RANIBIZUMAB
     Dosage: 1X, PREFILLED SYRINGE (RIGHT EYE)
     Route: 031
     Dates: start: 20191002
  2. RANIBIZUMAB. [Suspect]
     Active Substance: RANIBIZUMAB
     Dosage: 1X, PREFILLED SYRINGE (RIGHT EYE)
     Route: 031
     Dates: start: 20191106
  3. RANIBIZUMAB. [Suspect]
     Active Substance: RANIBIZUMAB
     Dosage: 1X, PREFILLED SYRINGE (LEFT EYE)
     Route: 031
     Dates: start: 20190612
  4. RANIBIZUMAB. [Suspect]
     Active Substance: RANIBIZUMAB
     Dosage: 0.5 MG, 1X, PREFILLED SYRINGE (LEFT EYE)
     Route: 031
     Dates: start: 20170515
  5. RANIBIZUMAB. [Suspect]
     Active Substance: RANIBIZUMAB
     Dosage: 1X, PREFILLED SYRINGE (RIGHT EYE)
     Route: 031
  6. RANIBIZUMAB. [Suspect]
     Active Substance: RANIBIZUMAB
     Indication: NEOVASCULAR AGE-RELATED MACULAR DEGENERATION
     Dosage: 0.5 MG, 1X, PREFILLED SYRINGE (LEFT EYE)
     Route: 031
     Dates: start: 20170403
  7. RANIBIZUMAB. [Suspect]
     Active Substance: RANIBIZUMAB
     Dosage: 0.5 MG, 1X, PREFILLED SYRINGE (RIGHT EYE)
     Route: 031
     Dates: start: 20170904

REACTIONS (2)
  - Macular oedema [Recovered/Resolved]
  - Macular oedema [Recovered/Resolved]

NARRATIVE: CASE EVENT DATE: 20170506
